FAERS Safety Report 12674590 (Version 1)
Quarter: 2016Q3

REPORT INFORMATION
  Report Type: Spontaneous
  Country: US (occurrence: US)
  Receive Date: 20160822
  Receipt Date: 20160822
  Transmission Date: 20161109
  Serious: No
  Sender: FDA-Public Use
  Company Number: US-GLAXOSMITHKLINE-US2016118173

PATIENT
  Sex: Female

DRUGS (1)
  1. ANORO ELLIPTA [Suspect]
     Active Substance: UMECLIDINIUM BROMIDE\VILANTEROL TRIFENATATE
     Indication: BRONCHIAL HYPERREACTIVITY
     Dosage: 1 PUFF(S), QD
     Route: 055

REACTIONS (3)
  - Dyspnoea [Recovered/Resolved]
  - Bronchospasm paradoxical [Recovered/Resolved]
  - Muscle spasms [Recovered/Resolved]
